FAERS Safety Report 22223164 (Version 1)
Quarter: 2023Q2

REPORT INFORMATION
  Report Type: Spontaneous
  Country: JP (occurrence: JP)
  Receive Date: 20230418
  Receipt Date: 20230418
  Transmission Date: 20230721
  Serious: Yes (Other)
  Sender: FDA-Public Use
  Company Number: JP-BAYER-2023A044802

PATIENT
  Age: 80 Year
  Sex: Male

DRUGS (5)
  1. RIVAROXABAN [Interacting]
     Active Substance: RIVAROXABAN
     Indication: Myocardial infarction
     Dosage: UNK
     Route: 048
     Dates: start: 2016, end: 2017
  2. RIVAROXABAN [Interacting]
     Active Substance: RIVAROXABAN
     Dosage: UNK
     Route: 048
     Dates: start: 2017
  3. CLOPIDOGREL [Interacting]
     Active Substance: CLOPIDOGREL BISULFATE
  4. NICORANDIL [Suspect]
     Active Substance: NICORANDIL
  5. PITAVASTATIN [Concomitant]
     Active Substance: PITAVASTATIN

REACTIONS (7)
  - Bladder cancer [Unknown]
  - Post procedural haemorrhage [Unknown]
  - Labelled drug-disease interaction medication error [Unknown]
  - Epistaxis [Unknown]
  - Wrong technique in product usage process [Unknown]
  - Off label use [Unknown]
  - Therapy interrupted [Unknown]

NARRATIVE: CASE EVENT DATE: 20160101
